FAERS Safety Report 11726757 (Version 2)
Quarter: 2015Q4

REPORT INFORMATION
  Report Type: Spontaneous
  Country: JO (occurrence: JO)
  Receive Date: 20151112
  Receipt Date: 20151125
  Transmission Date: 20160304
  Serious: Yes (Other)
  Sender: FDA-Public Use
  Company Number: PHHY2015JO140877

PATIENT
  Age: 19 Year
  Sex: Male
  Weight: 48 kg

DRUGS (5)
  1. NEORAL [Suspect]
     Active Substance: CYCLOSPORINE
     Indication: RENAL TRANSPLANT
     Dosage: 100 MG, BID
     Route: 048
     Dates: start: 20150806, end: 20150809
  2. ROCEPHIN [Concomitant]
     Active Substance: CEFTRIAXONE SODIUM
     Indication: GASTROINTESTINAL INFECTION
     Dosage: 2 MG, QD
     Route: 042
     Dates: start: 20150806, end: 20150812
  3. PERFALGAN [Concomitant]
     Active Substance: ACETAMINOPHEN
     Indication: PAIN
     Dosage: UKN, PRN
     Route: 042
     Dates: start: 20150806, end: 20150810
  4. NEXIUM [Concomitant]
     Active Substance: ESOMEPRAZOLE MAGNESIUM
     Indication: GASTROINTESTINAL INFECTION
     Dosage: 40 MG, UNK
     Route: 048
     Dates: start: 20150806, end: 20150815
  5. MORPHINE [Concomitant]
     Active Substance: MORPHINE
     Indication: PAIN
     Dosage: 1 MG/H, UNK
     Route: 042
     Dates: start: 20150806, end: 20150807

REACTIONS (7)
  - Generalised tonic-clonic seizure [Recovered/Resolved]
  - Muscle rigidity [Unknown]
  - Haemoglobin decreased [Unknown]
  - Seizure [Recovered/Resolved]
  - Loss of consciousness [Unknown]
  - Emotional distress [Unknown]
  - Confusional state [Unknown]

NARRATIVE: CASE EVENT DATE: 20150809
